FAERS Safety Report 14128528 (Version 1)
Quarter: 2017Q4

REPORT INFORMATION
  Report Type: Spontaneous
  Country: US (occurrence: US)
  Receive Date: 20171026
  Receipt Date: 20171026
  Transmission Date: 20180321
  Serious: No
  Sender: FDA-Public Use
  Company Number: None

PATIENT
  Age: 62 Year
  Sex: Female
  Weight: 58.5 kg

DRUGS (2)
  1. MIRALAX [Suspect]
     Active Substance: POLYETHYLENE GLYCOL 3350
     Indication: CONSTIPATION
     Route: 048
  2. LEVYOTHROXIN [Concomitant]

REACTIONS (5)
  - Gingival swelling [None]
  - Gingival bleeding [None]
  - Abdominal discomfort [None]
  - Body temperature increased [None]
  - Headache [None]
